FAERS Safety Report 24426560 (Version 2)
Quarter: 2025Q3

REPORT INFORMATION
  Report Type: Report from Study
  Country: EU (occurrence: EU)
  Receive Date: 20241011
  Receipt Date: 20250809
  Transmission Date: 20251021
  Serious: Yes (Other)
  Sender: ALEXION PHARMACEUTICALS
  Company Number: EU-AstraZeneca-2022A370391

PATIENT
  Age: 67 Year
  Sex: Male

DRUGS (6)
  1. FASENRA [Suspect]
     Active Substance: BENRALIZUMAB
     Indication: Asthma
     Dosage: 30 MILLIGRAM, UNK, FREQUENCY: Q8WK
     Dates: start: 20221006
  2. FASENRA [Suspect]
     Active Substance: BENRALIZUMAB
  3. FASENRA [Suspect]
     Active Substance: BENRALIZUMAB
  4. FASENRA [Suspect]
     Active Substance: BENRALIZUMAB
  5. FASENRA [Suspect]
     Active Substance: BENRALIZUMAB
  6. SYMBICORT [Concomitant]
     Active Substance: BUDESONIDE\FORMOTEROL FUMARATE DIHYDRATE
     Dosage: 200 MG TWO TIMES A DAY
     Route: 050

REACTIONS (5)
  - Lower respiratory tract infection [Recovering/Resolving]
  - Heart rate increased [Unknown]
  - Dyspnoea [Recovered/Resolved]
  - Drug effect less than expected [Recovered/Resolved]
  - Medication error [Unknown]

NARRATIVE: CASE EVENT DATE: 20221013
